FAERS Safety Report 17348073 (Version 1)
Quarter: 2020Q1

REPORT INFORMATION
  Report Type: Report from Study
  Country: US (occurrence: US)
  Receive Date: 20200129
  Receipt Date: 20200129
  Transmission Date: 20200409
  Serious: No
  Sender: FDA-Public Use
  Company Number: US-EXELIXIS-CABO-19023682

PATIENT
  Age: 61 Year
  Sex: Male

DRUGS (1)
  1. CABOMETYX [Suspect]
     Active Substance: CABOZANTINIB S-MALATE
     Indication: NEOPLASM MALIGNANT
     Dosage: 40 MG, QD
     Route: 048
     Dates: start: 20190830, end: 20190928

REACTIONS (7)
  - Tenderness [Unknown]
  - Fatigue [Unknown]
  - Blood pressure increased [Unknown]
  - Productive cough [Unknown]
  - Nausea [Unknown]
  - Erythema [Unknown]
  - Product dose omission [Unknown]

NARRATIVE: CASE EVENT DATE: 20190929
